FAERS Safety Report 26186995 (Version 1)
Quarter: 2025Q4

REPORT INFORMATION
  Report Type: Spontaneous
  Country: US (occurrence: None)
  Receive Date: 20251222
  Receipt Date: 20251222
  Transmission Date: 20260117
  Serious: Yes (Other)
  Sender: FDA-CTU
  Company Number: None

PATIENT
  Sex: Male

DRUGS (8)
  1. VYNDAMAX [Suspect]
     Active Substance: TAFAMIDIS
     Indication: Cardiac amyloidosis
     Dosage: TAKE 1 CAPSULE (61 MG TOTAL) BY MOUTH DAILY.
     Route: 048
     Dates: start: 20220802
  2. AMIODARONE [Concomitant]
     Active Substance: AMIODARONE
  3. CRESTOR [Concomitant]
     Active Substance: ROSUVASTATIN CALCIUM
  4. JARDIANCE [Concomitant]
     Active Substance: EMPAGLIFLOZIN
  5. LASIX TAB 40MG [Concomitant]
  6. MULTI VITAMN TAB MINERALS [Concomitant]
  7. PROBIOTIC CAP COMPLEX [Concomitant]
  8. XARELTO [Concomitant]
     Active Substance: RIVAROXABAN

REACTIONS (2)
  - Cardiac ablation [None]
  - Cardioversion [None]
